FAERS Safety Report 5316125-2 (Version None)
Quarter: 2007Q2

REPORT INFORMATION
  Report Type: 
  Country: None (occurrence: None)
  Receive Date: 20070503
  Receipt Date: 20070430
  Transmission Date: 20071010
  Serious: Yes (Hospitalization, Other)
  Sender: FDA-Public Use
  Company Number: US-ELI_LILLY_AND_COMPANY-US200703003929

PATIENT
  Age: 80 Year
  Sex: Female

DRUGS (4)
  1. BYETTA [Suspect]
     Indication: DIABETES MELLITUS NON-INSULIN-DEPENDENT
     Dosage: 10 UG, 2/D
     Route: 058
     Dates: start: 20070201
  2. BYETTA [Suspect]
     Dosage: 5 UG, 2/D
     Route: 058
     Dates: start: 20051201, end: 20070201
  3. ACTOS [Concomitant]
     Dosage: UNK, UNKNOWN
     Dates: start: 20060501, end: 20061001
  4. METFORMIN HCL [Concomitant]
     Dosage: UNK, UNKNOWN
     Dates: start: 20060501

REACTIONS (3)
  - BLOOD GLUCOSE INCREASED [None]
  - LYMPHOEDEMA [None]
  - UTERINE CANCER [None]
